FAERS Safety Report 8800128 (Version 1)
Quarter: 2012Q4

REPORT INFORMATION
  Report Type: Spontaneous
  Country: US (occurrence: None)
  Receive Date: 20120918
  Receipt Date: 20120918
  Transmission Date: 20130627
  Serious: No
  Sender: FDA-Public Use
  Company Number: None

PATIENT
  Age: 59 Year
  Sex: Female

DRUGS (2)
  1. VELCADE [Suspect]
     Dosage: Velcade IV 2008
  2. DEXAMETHASONE [Suspect]
     Dosage: Dexamethasone 2004

REACTIONS (4)
  - Herpes zoster [None]
  - Neuropathy peripheral [None]
  - Constipation [None]
  - Mood swings [None]
